FAERS Safety Report 9719614 (Version 2)
Quarter: 2016Q3

REPORT INFORMATION
  Report Type: Report from Study
  Country: US (occurrence: US)
  Receive Date: 20131128
  Receipt Date: 20160817
  Transmission Date: 20161109
  Serious: Yes (Death, Hospitalization)
  Sender: FDA-Public Use
  Company Number: US-ROCHE-1309626

PATIENT
  Age: 79 Year
  Sex: Male

DRUGS (14)
  1. KLOR-CON [Concomitant]
     Active Substance: POTASSIUM CHLORIDE
     Route: 065
  2. COREG [Concomitant]
     Active Substance: CARVEDILOL
     Route: 065
  3. ARMOUR THYROID [Concomitant]
     Active Substance: THYROID, PORCINE
     Route: 048
  4. ALLOPURINOL. [Concomitant]
     Active Substance: ALLOPURINOL
     Route: 065
  5. ACYCLOVIR. [Concomitant]
     Active Substance: ACYCLOVIR
  6. COUMADIN [Concomitant]
     Active Substance: WARFARIN SODIUM
     Dosage: 5 MG EVERY MORNING 10 MG ON SATURDAY, SUNDAY, TUESDAY AND THURSDAY.?5 MG ON MONDAY, WEDNESDAY AND FR
     Route: 065
  7. VALCYTE [Suspect]
     Active Substance: VALGANCICLOVIR HYDROCHLORIDE
     Indication: PNEUMONIA VIRAL
     Route: 048
  8. VALCYTE [Suspect]
     Active Substance: VALGANCICLOVIR HYDROCHLORIDE
     Indication: PULMONARY MASS
     Dosage: 900 MG DAILY FOR 30 DAYS
     Route: 048
  9. LACTINEX (UNITED STATES) [Concomitant]
     Route: 048
  10. ASPIRIN. [Concomitant]
     Active Substance: ASPIRIN
     Route: 065
  11. SINGULAIR [Concomitant]
     Active Substance: MONTELUKAST SODIUM
     Route: 065
  12. BUMEX [Concomitant]
     Active Substance: BUMETANIDE
     Route: 065
  13. LISINOPRIL. [Concomitant]
     Active Substance: LISINOPRIL
     Route: 065
  14. GANCICLOVIR. [Suspect]
     Active Substance: GANCICLOVIR
     Indication: PRODUCT USED FOR UNKNOWN INDICATION
     Route: 065

REACTIONS (7)
  - Cytomegalovirus test positive [Unknown]
  - Productive cough [Unknown]
  - Death [Fatal]
  - Fatigue [Unknown]
  - Dyspnoea [Unknown]
  - Pyrexia [Unknown]
  - Malaise [Unknown]

NARRATIVE: CASE EVENT DATE: 20130721
